FAERS Safety Report 7680009-5 (Version None)
Quarter: 2011Q3

REPORT INFORMATION
  Report Type: 
  Country: None (occurrence: None)
  Receive Date: 20110812
  Receipt Date: 20110805
  Transmission Date: 20111222
  Serious: Yes (Death, Hospitalization, Other)
  Sender: FDA-Public Use
  Company Number: US-PFIZER INC-2009304571

PATIENT
  Sex: Male
  Weight: 57 kg

DRUGS (12)
  1. SUTENT [Suspect]
     Indication: NON-SMALL CELL LUNG CANCER
     Dosage: 25 MG, CYCLIC, SCHEDULE 2/1
     Route: 048
     Dates: start: 20091014, end: 20091117
  2. ALBUTEROL SULFATE AUTOHALER [Concomitant]
     Indication: DYSPNOEA
     Dosage: UNK
     Dates: start: 20090801
  3. MORPHINE SULFATE [Concomitant]
     Indication: PAIN
     Dosage: UNK
     Dates: start: 20081001
  4. ZOMETA [Concomitant]
     Indication: METASTASES TO BONE
     Dosage: UNK
  5. ZOLPIDEM [Concomitant]
     Indication: INSOMNIA
     Dosage: UNK
     Dates: start: 20090701
  6. CP-751,871 [Suspect]
     Indication: NON-SMALL CELL LUNG CANCER
     Dosage: 1230 MG, CYCLIC, EVERY 3 WEEKS
     Route: 042
     Dates: start: 20091014, end: 20091104
  7. ALBUTEROL SULFATE AUTOHALER [Concomitant]
     Indication: COUGH
  8. FENTANYL [Concomitant]
     Indication: PAIN
     Dosage: UNK
     Route: 062
     Dates: start: 20091008
  9. TESSALON [Concomitant]
     Indication: COUGH
     Dosage: UNK
     Dates: start: 20090801
  10. VICODIN [Concomitant]
     Indication: PAIN
     Dosage: UNK
     Dates: start: 20081001
  11. VENTOLIN HFA [Concomitant]
     Indication: DYSPNOEA
     Dosage: UNK
     Dates: start: 20081001
  12. VENTOLIN HFA [Concomitant]
     Indication: COUGH

REACTIONS (2)
  - DISEASE PROGRESSION [None]
  - NON-SMALL CELL LUNG CANCER [None]
